FAERS Safety Report 23448680 (Version 1)
Quarter: 2024Q1

REPORT INFORMATION
  Report Type: Spontaneous
  Country: FR (occurrence: FR)
  Receive Date: 20240127
  Receipt Date: 20240127
  Transmission Date: 20240410
  Serious: Yes (Hospitalization, Other)
  Sender: FDA-Public Use
  Company Number: FR-Accord-402853

PATIENT
  Sex: Male

DRUGS (1)
  1. DAPTOMYCIN [Suspect]
     Active Substance: DAPTOMYCIN
     Indication: Corynebacterium infection
     Route: 042

REACTIONS (4)
  - Corynebacterium bacteraemia [Recovering/Resolving]
  - Drug resistance [Unknown]
  - Infection [Recovering/Resolving]
  - Drug ineffective [Unknown]
